FAERS Safety Report 8634667 (Version 3)
Quarter: 2014Q2

REPORT INFORMATION
  Report Type: Spontaneous
  Country: US (occurrence: US)
  Receive Date: 20120626
  Receipt Date: 20140617
  Transmission Date: 20141212
  Serious: Yes (Hospitalization)
  Sender: FDA-Public Use
  Company Number: US-BAYER-2012-062012

PATIENT
  Age: 26 Year
  Sex: Female
  Weight: 97 kg

DRUGS (9)
  1. YASMIN [Suspect]
     Indication: POLYCYSTIC OVARIES
     Dosage: UNK
     Dates: start: 201102, end: 201103
  2. YASMIN [Suspect]
     Indication: MENSTRUATION IRREGULAR
  3. YASMIN [Suspect]
     Indication: ACNE
  4. METFORMIN [Concomitant]
     Indication: POLYCYSTIC OVARIES
     Dosage: 500 MG, BID
     Route: 048
     Dates: start: 20110224
  5. KLONOPIN [Concomitant]
     Indication: ANXIETY
     Dosage: UNK
     Route: 048
     Dates: start: 20110316
  6. OXYCODONE [Concomitant]
  7. PHENERGAN [Concomitant]
  8. ACETAMINOPHEN W/HYDROCODONE BITARTRATE [Concomitant]
     Dosage: UNK
     Dates: start: 20101203
  9. CHERATUSSIN AC [Concomitant]
     Dosage: UNK
     Route: 048
     Dates: start: 20110127

REACTIONS (5)
  - Pulmonary embolism [Recovered/Resolved]
  - Pain [None]
  - Pain [Recovered/Resolved]
  - Off label use [None]
  - Anxiety [None]
